FAERS Safety Report 13679454 (Version 1)
Quarter: 2017Q2

REPORT INFORMATION
  Report Type: Report from Study
  Country: US (occurrence: US)
  Receive Date: 20170622
  Receipt Date: 20170622
  Transmission Date: 20170830
  Serious: Yes (Hospitalization)
  Sender: FDA-Public Use
  Company Number: US-JAZZ-2017-US-007635

PATIENT
  Sex: Male

DRUGS (2)
  1. CLOZAPINE ODT [Suspect]
     Active Substance: CLOZAPINE
     Dosage: 800 MG, QD (AT BEDTIME)
     Route: 048
  2. CLOZAPINE ODT [Suspect]
     Active Substance: CLOZAPINE
     Indication: SCHIZOPHRENIA
     Dosage: UNK MG, QD
     Route: 048
     Dates: start: 2012

REACTIONS (2)
  - Constipation [Unknown]
  - Asthma [Unknown]
